FAERS Safety Report 23274461 (Version 4)
Quarter: 2024Q1

REPORT INFORMATION
  Report Type: Spontaneous
  Country: US (occurrence: US)
  Receive Date: 20231208
  Receipt Date: 20240320
  Transmission Date: 20240409
  Serious: No
  Sender: FDA-Public Use
  Company Number: US-SAGE-2023SAGE000119

PATIENT
  Age: 1 Year
  Sex: Female

DRUGS (4)
  1. ZULRESSO [Suspect]
     Active Substance: BREXANOLONE
     Indication: New onset refractory status epilepticus
     Dosage: UNK
     Route: 042
     Dates: start: 20231107
  2. ZULRESSO [Suspect]
     Active Substance: BREXANOLONE
     Dosage: BAG 8
     Route: 042
     Dates: end: 20231111
  3. ZULRESSO [Suspect]
     Active Substance: BREXANOLONE
     Dosage: BAG 9
     Route: 042
     Dates: start: 20231111, end: 20231112
  4. ZULRESSO [Suspect]
     Active Substance: BREXANOLONE
     Dosage: UNK
     Route: 042
     Dates: end: 20231112

REACTIONS (6)
  - Off label use [Unknown]
  - Incorrect product administration duration [Unknown]
  - Circumstance or information capable of leading to medication error [Unknown]
  - Product distribution issue [Unknown]
  - Product use in unapproved indication [Unknown]
  - Drug monitoring procedure incorrectly performed [Unknown]

NARRATIVE: CASE EVENT DATE: 20231107
